FAERS Safety Report 9580087 (Version 1)
Quarter: 2013Q3

REPORT INFORMATION
  Report Type: Spontaneous
  Country: US (occurrence: None)
  Receive Date: 20130916
  Receipt Date: 20130916
  Transmission Date: 20140515
  Serious: Yes (Other)
  Sender: FDA-Public Use
  Company Number: JPI-P-028992

PATIENT
  Age: 38 Year
  Sex: Female
  Weight: 85.73 kg

DRUGS (3)
  1. XYREM (500 MILLIGRAM/MILLILITERS, SOLUTION) (SODIUM OXYBATE) [Suspect]
     Indication: CATAPLEXY
     Route: 048
     Dates: start: 20110127
  2. DULOXETINE [Concomitant]
  3. ARMODAFINIL [Concomitant]

REACTIONS (7)
  - Sleep apnoea syndrome [None]
  - Oxygen saturation decreased [None]
  - Nasopharyngitis [None]
  - Cough [None]
  - Sneezing [None]
  - Oropharyngeal pain [None]
  - Fatigue [None]
